FAERS Safety Report 17531450 (Version 2)
Quarter: 2020Q2

REPORT INFORMATION
  Report Type: Spontaneous
  Country: US (occurrence: US)
  Receive Date: 20200311
  Receipt Date: 20200515
  Transmission Date: 20200713
  Serious: No
  Sender: FDA-Public Use
  Company Number: US-INCYTE CORPORATION-2020IN002132

PATIENT

DRUGS (4)
  1. JAKAFI [Suspect]
     Active Substance: RUXOLITINIB
     Indication: MYELOPROLIFERATIVE NEOPLASM
  2. JAKAFI [Suspect]
     Active Substance: RUXOLITINIB
     Indication: BASAL CELL CARCINOMA
  3. JAKAFI [Suspect]
     Active Substance: RUXOLITINIB
     Indication: SKIN CANCER
     Dosage: 5 MILLIGRAM, BID
     Route: 048
     Dates: start: 20170309
  4. JAKAFI [Suspect]
     Active Substance: RUXOLITINIB
     Indication: SQUAMOUS CELL CARCINOMA OF SKIN

REACTIONS (1)
  - Off label use [Unknown]

NARRATIVE: CASE EVENT DATE: 20170309
